FAERS Safety Report 14777203 (Version 3)
Quarter: 2018Q2

REPORT INFORMATION
  Report Type: Report from Study
  Country: None (occurrence: US)
  Receive Date: 20180419
  Receipt Date: 20180611
  Transmission Date: 20180711
  Serious: Yes (Hospitalization, Other)
  Sender: FDA-Public Use
  Company Number: US-ABBVIE-18K-163-2326131-00

PATIENT
  Age: 55 Year
  Sex: Female

DRUGS (3)
  1. HUMIRA [Suspect]
     Active Substance: ADALIMUMAB
     Indication: CROHN^S DISEASE
     Route: 058
     Dates: start: 20150518
  2. OXYCODONE [Concomitant]
     Active Substance: OXYCODONE
     Indication: PAIN
     Dosage: 1 EVERY 3 HOURS OR 3 PER DAY
  3. HUMIRA [Suspect]
     Active Substance: ADALIMUMAB
     Route: 058

REACTIONS (17)
  - Drug ineffective [Not Recovered/Not Resolved]
  - Nausea [Unknown]
  - Abdominal pain [Unknown]
  - Haemorrhage [Unknown]
  - Blood count abnormal [Not Recovered/Not Resolved]
  - Fall [Unknown]
  - Patella fracture [Unknown]
  - Post procedural diarrhoea [Unknown]
  - Haemoglobin decreased [Unknown]
  - Intestinal obstruction [Unknown]
  - Pain [Unknown]
  - Procedural vomiting [Unknown]
  - Weight decreased [Unknown]
  - Intervertebral disc protrusion [Unknown]
  - Blood iron decreased [Not Recovered/Not Resolved]
  - Urticaria [Unknown]
  - Asthenia [Unknown]

NARRATIVE: CASE EVENT DATE: 20160321
